FAERS Safety Report 7811221-X (Version None)
Quarter: 2011Q4

REPORT INFORMATION
  Report Type: 
  Country: None (occurrence: None)
  Receive Date: 20111013
  Receipt Date: 20110929
  Transmission Date: 20120403
  Serious: Yes (Other)
  Sender: FDA-Public Use
  Company Number: US-BAYER-2011-093017

PATIENT
  Age: 30 Year
  Sex: Female

DRUGS (1)
  1. MIRENA [Suspect]
     Indication: CONTRACEPTION
     Dosage: 20 MCG/24HR, CONT
     Route: 015
     Dates: start: 20110818, end: 20110926

REACTIONS (7)
  - NAUSEA [None]
  - DIZZINESS [None]
  - FALL [None]
  - GENITAL HAEMORRHAGE [None]
  - ALOPECIA [None]
  - ADVERSE EVENT [None]
  - VOMITING [None]
